FAERS Safety Report 5583757-6 (Version None)
Quarter: 2008Q1

REPORT INFORMATION
  Report Type: 
  Country: None (occurrence: None)
  Receive Date: 20080103
  Receipt Date: 20080103
  Transmission Date: 20080703
  Serious: Yes (Hospitalization)
  Sender: FDA-Public Use
  Company Number: None

PATIENT
  Sex: Male
  Weight: 92.4431 kg

DRUGS (3)
  1. BEVACIZUMAB [Suspect]
     Indication: NON-SMALL CELL LUNG CANCER
     Dosage: 930 MG Q 2WKS IV
     Route: 042
     Dates: start: 20071010, end: 20071220
  2. GEMZAR [Concomitant]
  3. CARBOPLATIN [Concomitant]

REACTIONS (1)
  - PULMONARY EMBOLISM [None]
